FAERS Safety Report 15630289 (Version 5)
Quarter: 2019Q1

REPORT INFORMATION
  Report Type: Spontaneous
  Country: JP (occurrence: JP)
  Receive Date: 20181118
  Receipt Date: 20190320
  Transmission Date: 20190417
  Serious: Yes (Death, Life-Threatening, Other)
  Sender: FDA-Public Use
  Company Number: JP-BRISTOL-MYERS SQUIBB COMPANY-BMS-2018-108274

PATIENT
  Age: 51 Year
  Sex: Male
  Weight: 64.7 kg

DRUGS (2)
  1. OPDIVO [Suspect]
     Active Substance: NIVOLUMAB
     Indication: SQUAMOUS CELL CARCINOMA OF HEAD AND NECK
     Dosage: 196.5 MG
     Route: 041
     Dates: start: 20170705, end: 20170816
  2. CISPLATIN. [Suspect]
     Active Substance: CISPLATIN
     Indication: SQUAMOUS CELL CARCINOMA OF HEAD AND NECK
     Dosage: UNK
     Route: 065
     Dates: start: 20170525, end: 20170531

REACTIONS (13)
  - Malignant neoplasm progression [Fatal]
  - Nephropathy toxic [Recovering/Resolving]
  - Oedema [Not Recovered/Not Resolved]
  - Insomnia [Not Recovered/Not Resolved]
  - Hyperkalaemia [Recovered/Resolved]
  - Irritability [Recovered/Resolved]
  - Dyspnoea [Not Recovered/Not Resolved]
  - Muscle tightness [Recovering/Resolving]
  - Hypercalcaemia [Recovering/Resolving]
  - Dry skin [Not Recovered/Not Resolved]
  - Nausea [Recovered/Resolved]
  - Cellulitis [Recovered/Resolved]
  - Malaise [Not Recovered/Not Resolved]

NARRATIVE: CASE EVENT DATE: 20170726
